FAERS Safety Report 8600294-2 (Version None)
Quarter: 2012Q3

REPORT INFORMATION
  Report Type: 
  Country: None (occurrence: None)
  Receive Date: 20120817
  Receipt Date: 20120813
  Transmission Date: 20120928
  Serious: No
  Sender: FDA-Public Use
  Company Number: US-BIOGENIDEC-2012BI031136

PATIENT
  Age: 42 Year
  Sex: Female

DRUGS (2)
  1. AVONEX [Suspect]
     Route: 030
     Dates: start: 20120624
  2. AVONEX [Suspect]
     Indication: MULTIPLE SCLEROSIS
     Route: 030
     Dates: start: 20120618

REACTIONS (11)
  - OEDEMA PERIPHERAL [None]
  - EYE PAIN [None]
  - BREAST SWELLING [None]
  - VISUAL IMPAIRMENT [None]
  - MOOD ALTERED [None]
  - NAUSEA [None]
  - DEPRESSION [None]
  - SWELLING FACE [None]
  - ENDOCRINE DISORDER [None]
  - SWELLING [None]
  - EYE SWELLING [None]
